FAERS Safety Report 4609376-3 (Version None)
Quarter: 2005Q1

REPORT INFORMATION
  Report Type: 
  Country: None (occurrence: None)
  Receive Date: 20050314
  Receipt Date: 20050302
  Transmission Date: 20050727
  Serious: Yes (Other)
  Sender: FDA-Public Use
  Company Number: 2005-00085

PATIENT
  Age: 39 Year
  Sex: Male
  Weight: 69.9 kg

DRUGS (3)
  1. VELCADE [Suspect]
     Indication: PLASMACYTOMA
     Dosage: SEE IMAGE, INTRAVENOUS
     Route: 042
     Dates: start: 20040831, end: 20041112
  2. VELCADE [Suspect]
     Indication: PLASMACYTOMA
     Dosage: SEE IMAGE, INTRAVENOUS
     Route: 042
     Dates: start: 20050103, end: 20050115
  3. ZOMETA [Concomitant]

REACTIONS (7)
  - ARTHRITIS REACTIVE [None]
  - ARTHROPOD BITE [None]
  - FEELING ABNORMAL [None]
  - HERPES SIMPLEX [None]
  - JOINT SWELLING [None]
  - RASH MACULO-PAPULAR [None]
  - VIRAL INFECTION [None]
